FAERS Safety Report 17048220 (Version 1)
Quarter: 2019Q4

REPORT INFORMATION
  Report Type: Spontaneous
  Country: US (occurrence: US)
  Receive Date: 20191021
  Receipt Date: 20191021
  Transmission Date: 20200122
  Serious: No
  Sender: FDA-Public Use
  Company Number: None

PATIENT
  Age: 51 Year
  Sex: Female

DRUGS (3)
  1. HUMIRA [Suspect]
     Active Substance: ADALIMUMAB
     Indication: RHEUMATOID ARTHRITIS
     Route: 058
     Dates: start: 20091219
  2. LEDIPASVIR/SOFOSBUVIR 90MG/400MG ASEGUA THERAPEUTICS [Suspect]
     Active Substance: LEDIPASVIR\SOFOSBUVIR
     Indication: RHEUMATOID ARTHRITIS
  3. LEDIPASVIR/SOFOSBUVIR 90MG/400MG ASEGUA THERAPEUTICS [Suspect]
     Active Substance: LEDIPASVIR\SOFOSBUVIR
     Indication: HEPATITIS C

REACTIONS (2)
  - Fatigue [None]
  - Weight increased [None]

NARRATIVE: CASE EVENT DATE: 20191021
